FAERS Safety Report 22096203 (Version 1)
Quarter: 2023Q1

REPORT INFORMATION
  Report Type: Spontaneous
  Country: US (occurrence: US)
  Receive Date: 20230315
  Receipt Date: 20230315
  Transmission Date: 20230418
  Serious: No
  Sender: FDA-Public Use
  Company Number: US-Axsome Therapeutics, Inc.-AXS202212-003490

PATIENT
  Sex: Female

DRUGS (3)
  1. AUVELITY [Suspect]
     Active Substance: BUPROPION HYDROCHLORIDE\DEXTROMETHORPHAN HYDROBROMIDE
     Indication: Product used for unknown indication
     Route: 048
  2. XEOMIN [Concomitant]
     Active Substance: INCOBOTULINUMTOXINA
     Indication: Product used for unknown indication
  3. RADIESSE [Concomitant]
     Active Substance: TRIBASIC CALCIUM PHOSPHATE
     Indication: Product used for unknown indication

REACTIONS (7)
  - Feeling abnormal [Recovering/Resolving]
  - Upper-airway cough syndrome [Recovering/Resolving]
  - Cough [Recovering/Resolving]
  - Memory impairment [Recovering/Resolving]
  - Feeling drunk [Recovering/Resolving]
  - Vision blurred [Recovering/Resolving]
  - Blood pressure increased [Unknown]
